FAERS Safety Report 8090692-0 (Version None)
Quarter: 2012Q1

REPORT INFORMATION
  Report Type: 
  Country: None (occurrence: None)
  Receive Date: 20120129
  Receipt Date: 20111207
  Transmission Date: 20120608
  Serious: No
  Sender: FDA-Public Use
  Company Number: US-ABBOTT-11P-163-0881869-00

PATIENT
  Age: 47 Year
  Sex: Female

DRUGS (8)
  1. HYDROCHLOROTHIAZIDE [Concomitant]
     Indication: HYPERTENSION
     Dosage: 80/25 MG - ONE DAILY
     Route: 048
  2. L-THYROID [Concomitant]
     Indication: THYROID DISORDER
     Route: 048
  3. ENABLEX [Concomitant]
     Indication: BLADDER DISORDER
     Route: 048
  4. NITROFURANTOIN [Concomitant]
     Indication: CYSTITIS
     Dosage: 100 MG - AT BEDTIME
     Route: 048
  5. ASACOL [Concomitant]
     Indication: COLITIS ULCERATIVE
     Route: 048
  6. HUMIRA [Suspect]
     Indication: CROHN'S DISEASE
     Dates: start: 20101101, end: 20111207
  7. TAMSULOSIN HCL [Concomitant]
     Indication: BLADDER DISORDER
     Route: 048
  8. NITROFURANTOIN [Concomitant]
     Indication: PROPHYLAXIS

REACTIONS (4)
  - COUGH [None]
  - UPPER RESPIRATORY TRACT INFECTION [None]
  - WHEEZING [None]
  - UPPER-AIRWAY COUGH SYNDROME [None]
